FAERS Safety Report 25125098 (Version 3)
Quarter: 2025Q2

REPORT INFORMATION
  Report Type: Spontaneous
  Country: FR (occurrence: FR)
  Receive Date: 20250326
  Receipt Date: 20250422
  Transmission Date: 20250716
  Serious: Yes (Hospitalization, Disabling, Other)
  Sender: MYLAN
  Company Number: None

PATIENT
  Age: 60 Year
  Sex: Female

DRUGS (42)
  1. LYRICA [Suspect]
     Active Substance: PREGABALIN
     Indication: Product used for unknown indication
     Dosage: 1 DOSAGE FORM, BID
  2. ACETAMINOPHEN [Suspect]
     Active Substance: ACETAMINOPHEN
     Indication: Product used for unknown indication
  3. BROMAZEPAM [Suspect]
     Active Substance: BROMAZEPAM
     Indication: Product used for unknown indication
     Dosage: 18 MILLIGRAM, QD (DOUBLE-SCORED 1 TBLT/30) 1/4 TABLET MORNING, NOON AND EVENING, FOR 3 MONTHS.
  4. BROMAZEPAM [Suspect]
     Active Substance: BROMAZEPAM
     Dosage: 0.25 DOSAGE FORM, Q8H (0.25 DF, TID)
  5. PREGABALIN [Suspect]
     Active Substance: PREGABALIN
     Indication: Product used for unknown indication
     Dosage: 1 DOSAGE FORM, BID
  6. SMECTA [Suspect]
     Active Substance: MONTMORILLONITE
     Indication: Product used for unknown indication
     Dosage: 3 DOSAGE FORM, QD (3 SACHETS A DAY FOR 10 DAYS)
  7. CHLORMADINONE [Suspect]
     Active Substance: CHLORMADINONE
     Indication: Product used for unknown indication
  8. PROGESTERONE [Suspect]
     Active Substance: PROGESTERONE
     Indication: Product used for unknown indication
     Dosage: 1 DOSE OF GEL PER DAY ON THE BREASTS RP 6 MONTHS
  9. PREGABALIN [Suspect]
     Active Substance: PREGABALIN
     Indication: Product used for unknown indication
  10. MIRTAZAPINE [Suspect]
     Active Substance: MIRTAZAPINE
     Indication: Product used for unknown indication
     Dosage: 15 MILLIGRAM (MERCK)
  11. MIRTAZAPINE [Suspect]
     Active Substance: MIRTAZAPINE
  12. METEOSPASMYL (ALVERINE CITRATE\DIMETHICONE) [Suspect]
     Active Substance: ALVERINE CITRATE\DIMETHICONE
     Indication: Product used for unknown indication
     Dosage: 30 MILLIGRAM, QD (30 MG 3 CAPSULES A DAY FOR 10 DAYS)
  13. METEOSPASMYL (ALVERINE CITRATE\DIMETHICONE) [Suspect]
     Active Substance: ALVERINE CITRATE\DIMETHICONE
  14. LOCOID [Suspect]
     Active Substance: HYDROCORTISONE BUTYRATE
     Indication: Product used for unknown indication
  15. CETIRIZINE HYDROCHLORIDE [Suspect]
     Active Substance: CETIRIZINE HYDROCHLORIDE
     Indication: Product used for unknown indication
  16. CETIRIZINE HYDROCHLORIDE [Suspect]
     Active Substance: CETIRIZINE HYDROCHLORIDE
     Indication: Product used for unknown indication
     Dosage: 10 MILLIGRAM, QD (1 DF, QD/ONCE IN THE EVENING)
  17. DAFALGAN [Suspect]
     Active Substance: ACETAMINOPHEN
     Indication: Product used for unknown indication
     Dosage: 4 DOSAGE FORM, QD
  18. GLYCERIN\MINERAL OIL\PETROLATUM [Suspect]
     Active Substance: GLYCERIN\MINERAL OIL\PETROLATUM
     Indication: Product used for unknown indication
  19. IBUPROFEN [Suspect]
     Active Substance: IBUPROFEN
     Indication: Product used for unknown indication
     Dosage: 15 PERCENT, QD (MAKE 3 APPLICATIONS PER DAY)
  20. NOMEGESTROL ACETATE [Suspect]
     Active Substance: NOMEGESTROL ACETATE
     Indication: Ovarian cyst
     Dosage: 5 MILLIGRAM, QD (1 DF, QD)
     Dates: start: 20100621
  21. NOMEGESTROL ACETATE [Suspect]
     Active Substance: NOMEGESTROL ACETATE
     Indication: Menstruation irregular
     Dosage: 5 MILLIGRAM, QD (1 DF, QD)
     Dates: start: 20120514
  22. NOMEGESTROL ACETATE [Suspect]
     Active Substance: NOMEGESTROL ACETATE
     Dosage: 5 MILLIGRAM, QD (1 DF, QD)
     Dates: start: 20130517
  23. NOMEGESTROL ACETATE [Suspect]
     Active Substance: NOMEGESTROL ACETATE
     Dosage: 5 MILLIGRAM, QD (1 DF, QD)
     Dates: start: 20140505
  24. NOMEGESTROL ACETATE [Suspect]
     Active Substance: NOMEGESTROL ACETATE
     Dosage: 5 MILLIGRAM, QD (1 DF, QD)
     Dates: start: 20150403
  25. NOMEGESTROL ACETATE [Suspect]
     Active Substance: NOMEGESTROL ACETATE
     Dosage: 5 MILLIGRAM, QD (1 DF, QD)
     Dates: start: 20170307
  26. NOMEGESTROL ACETATE [Suspect]
     Active Substance: NOMEGESTROL ACETATE
     Dosage: 5 MILLIGRAM, QD (1 DF, QD)
     Dates: start: 20170613
  27. NOMEGESTROL ACETATE [Suspect]
     Active Substance: NOMEGESTROL ACETATE
     Dosage: 5 MILLIGRAM, QD (1 DF, QD)
     Dates: start: 20170921
  28. NOMEGESTROL ACETATE [Suspect]
     Active Substance: NOMEGESTROL ACETATE
     Dosage: 5 MILLIGRAM, QD (1 DF, QD)
     Dates: start: 20171211
  29. NOMEGESTROL ACETATE [Suspect]
     Active Substance: NOMEGESTROL ACETATE
     Dosage: 5 MILLIGRAM, QD (1 DF, QD)
     Dates: start: 20180329
  30. NOMEGESTROL ACETATE [Suspect]
     Active Substance: NOMEGESTROL ACETATE
     Dosage: 5 MILLIGRAM, QD (1 DF, QD)
     Dates: start: 20181106, end: 20190117
  31. CHLORMADINONE ACETATE [Suspect]
     Active Substance: CHLORMADINONE ACETATE
     Indication: Ovarian cyst
     Dosage: 5 MILLIGRAM, QD (ONE TABLET PER DAY DURING 21 DAYS AND 7 DAYS OFF BY MONTHS)
  32. CHLORMADINONE ACETATE [Suspect]
     Active Substance: CHLORMADINONE ACETATE
     Indication: Menstruation irregular
  33. CHLORMADINONE ACETATE [Suspect]
     Active Substance: CHLORMADINONE ACETATE
     Dosage: 10 MILLIGRAM, QD (1 DF, QD FOR 21 DAYS/ONE TABLET PER DAY DURING 21 DAYS AND 7 DAYS OFF BY MONTHS)
     Dates: start: 20100317, end: 20100621
  34. CHLORMADINONE ACETATE [Suspect]
     Active Substance: CHLORMADINONE ACETATE
     Dosage: 1 DOSAGE FORM, QD (1 DF , QD FOR 21 DAYS)
     Dates: start: 20190117
  35. CHLORMADINONE ACETATE [Suspect]
     Active Substance: CHLORMADINONE ACETATE
     Dosage: 1 DOSAGE FORM, QD (1 DF , QD FOR 21 DAYS)
     Dates: start: 20190715
  36. CHLORMADINONE ACETATE [Suspect]
     Active Substance: CHLORMADINONE ACETATE
     Dosage: 10 MILLIGRAM, QD (1 DF, QD FOR 21 DAYS/MERCK, 1 TABLET PER DAY DURING 21 DAY, 7 DAYS OFF BY MONTHS)
     Dates: start: 20190806
  37. CHLORMADINONE ACETATE [Suspect]
     Active Substance: CHLORMADINONE ACETATE
     Dosage: 10 MILLIGRAM, QD, ONE TABLET PER DAY DURING 21 DAYS AND 7 DAYS OFF BY MONTHS
     Dates: start: 20191028
  38. MIRTAZAPINE [Suspect]
     Active Substance: MIRTAZAPINE
     Indication: Product used for unknown indication
     Dosage: 30 MILLIGRAMS, QD (ARROW GENERIQUES 15 MG FI/30, (2 TABLETS IN THE EVENING FOR 3 MONTHS))
  39. TRAMADOL HYDROCHLORIDE [Suspect]
     Active Substance: TRAMADOL HYDROCHLORIDE
     Indication: Complex regional pain syndrome
     Dosage: 150 MILLIGRAM, QD (1 DF, QD)
  40. TIAPRIDE HYDROCHLORIDE [Suspect]
     Active Substance: TIAPRIDE HYDROCHLORIDE
     Indication: Product used for unknown indication
     Dosage: 100 MILLIGRAM, QD (1 DF, QD/ONCE IN THE EVENING)
  41. TIAPRIDE HYDROCHLORIDE [Suspect]
     Active Substance: TIAPRIDE HYDROCHLORIDE
     Dosage: 150 MILLIGRAM, QD, TAKE 1 CAPSULE IN THE EVENING FOR 3 MONTHS)
  42. ACETAMINOPHEN [Suspect]
     Active Substance: ACETAMINOPHEN
     Indication: Product used for unknown indication
     Dosage: 4 GRAM, QD, (4 TABLETS A DAY FOR ONE MONTH, IF NECESSARY

REACTIONS (7)
  - Meningioma [Unknown]
  - Muscular weakness [Not Recovered/Not Resolved]
  - Pain in extremity [Not Recovered/Not Resolved]
  - Dizziness [Not Recovered/Not Resolved]
  - Epistaxis [Not Recovered/Not Resolved]
  - Headache [Not Recovered/Not Resolved]
  - Asthenia [Not Recovered/Not Resolved]

NARRATIVE: CASE EVENT DATE: 20211021
